FAERS Safety Report 15930274 (Version 1)
Quarter: 2019Q1

REPORT INFORMATION
  Report Type: Spontaneous
  Country: US (occurrence: US)
  Receive Date: 20190115
  Receipt Date: 20190115
  Transmission Date: 20190417
  Serious: No
  Sender: FDA-Public Use
  Company Number: None

PATIENT
  Age: 70 Year
  Sex: Male

DRUGS (1)
  1. CAPECITABINE TAB 500MG [Suspect]
     Active Substance: CAPECITABINE
     Route: 048
     Dates: start: 20171030

REACTIONS (4)
  - Constipation [None]
  - Rash [None]
  - Seizure [None]
  - Hypoaesthesia [None]

NARRATIVE: CASE EVENT DATE: 20190115
